FAERS Safety Report 13398403 (Version 2)
Quarter: 2017Q2

REPORT INFORMATION
  Report Type: Report from Study
  Country: US (occurrence: US)
  Receive Date: 20170403
  Receipt Date: 20170511
  Transmission Date: 20170830
  Serious: Yes (Other)
  Sender: FDA-Public Use
  Company Number: US-EXELIXIS-CABO-17008695

PATIENT
  Age: 72 Year
  Sex: Female

DRUGS (3)
  1. LASIX [Concomitant]
     Active Substance: FUROSEMIDE
  2. CABOMETYX [Suspect]
     Active Substance: CABOZANTINIB S-MALATE
     Indication: BREAST CANCER FEMALE
     Dosage: 60 MG, QD
     Route: 048
     Dates: start: 20170301, end: 20170305
  3. OXYCODONE [Concomitant]
     Active Substance: OXYCODONE

REACTIONS (5)
  - Generalised oedema [Unknown]
  - Ascites [Unknown]
  - Intestinal perforation [Unknown]
  - Off label use [Unknown]
  - Colonic abscess [Unknown]

NARRATIVE: CASE EVENT DATE: 20170305
